FAERS Safety Report 4736203-6 (Version None)
Quarter: 2005Q3

REPORT INFORMATION
  Report Type: 
  Country: None (occurrence: None)
  Receive Date: 20050806
  Receipt Date: 20050712
  Transmission Date: 20060218
  Serious: Yes (Hospitalization)
  Sender: FDA-Public Use
  Company Number: PHBS2005JP10078

PATIENT
  Age: 68 Year
  Sex: Male
  Weight: 50 kg

DRUGS (5)
  1. LAMISIL [Suspect]
     Indication: NAIL TINEA
     Dosage: 125 MG, QD
     Route: 048
     Dates: start: 20050530, end: 20050626
  2. ADALAT [Concomitant]
     Indication: HYPERTENSION
     Dosage: 40 MG/D
     Route: 048
     Dates: start: 20050318
  3. BLOPRESS [Concomitant]
     Indication: HYPERTENSION
     Dosage: 4 MG/D
     Route: 048
     Dates: start: 20050318, end: 20050626
  4. ZANTAC [Concomitant]
     Indication: GASTRITIS
     Dosage: 300 MG/D
     Route: 048
     Dates: start: 20050318, end: 20050616
  5. MAGNESIUM OXIDE [Concomitant]
     Indication: CONSTIPATION
     Dosage: 1.5 G/D
     Route: 048
     Dates: start: 20050318, end: 20050626

REACTIONS (5)
  - ACUTE MYOCARDIAL INFARCTION [None]
  - ANGINA PECTORIS [None]
  - BLOOD CREATINE PHOSPHOKINASE INCREASED [None]
  - CHEST PAIN [None]
  - ELECTROCARDIOGRAM ST SEGMENT DEPRESSION [None]
